FAERS Safety Report 8520190-9 (Version None)
Quarter: 2012Q3

REPORT INFORMATION
  Report Type: 
  Country: None (occurrence: None)
  Receive Date: 20120719
  Receipt Date: 20120712
  Transmission Date: 20120928
  Serious: Yes (Hospitalization)
  Sender: FDA-Public Use
  Company Number: US-JNJFOC-20120707472

PATIENT
  Sex: Male
  Weight: 116.3 kg

DRUGS (15)
  1. REMICADE [Suspect]
     Indication: CROHN'S DISEASE
     Route: 042
     Dates: start: 20110413
  2. CALCIUM CARBONATE [Concomitant]
  3. GLYCOPYRROLATE [Concomitant]
  4. MESALAMINE [Concomitant]
     Route: 048
  5. OMEPRAZOLE [Concomitant]
  6. ONDANSETRON [Concomitant]
  7. ALBUTEROL [Concomitant]
  8. DEXAMETHASONE [Concomitant]
  9. MORPHINE [Concomitant]
  10. NEOSTIGMINE METHYLSULFATE [Concomitant]
  11. ROCURONIUM BROMIDE [Concomitant]
  12. VITAMIN D [Concomitant]
  13. AMITRIPTYLINE HYDROCHLORIDE [Concomitant]
  14. TYLENOL W/ CODEINE [Concomitant]
  15. PROPOFOL [Concomitant]

REACTIONS (1)
  - CROHN'S DISEASE [None]
